FAERS Safety Report 5375498-5 (Version None)
Quarter: 2007Q2

REPORT INFORMATION
  Report Type: 
  Country: None (occurrence: None)
  Receive Date: 20070629
  Receipt Date: 20070619
  Transmission Date: 20071010
  Serious: Yes (Other)
  Sender: FDA-Public Use
  Company Number: US-PFIZER INC-2007049666

PATIENT
  Sex: Female
  Weight: 63.636 kg

DRUGS (3)
  1. CHANTIX [Suspect]
     Indication: SMOKING CESSATION THERAPY
  2. OTHER HYPNOTICS AND SEDATIVES [Concomitant]
  3. MULTIVITAMIN [Concomitant]

REACTIONS (4)
  - ANGER [None]
  - EMOTIONAL DISORDER [None]
  - MOOD ALTERED [None]
  - SMOKER [None]
